FAERS Safety Report 21972625 (Version 1)
Quarter: 2023Q1

REPORT INFORMATION
  Report Type: Spontaneous
  Country: AU (occurrence: AU)
  Receive Date: 20230209
  Receipt Date: 20230209
  Transmission Date: 20230418
  Serious: Yes (Hospitalization, Other)
  Sender: FDA-Public Use
  Company Number: AU-PFIZER INC-PV202300023683

PATIENT
  Age: 47 Year
  Sex: Male

DRUGS (12)
  1. ERYTHROMYCIN [Suspect]
     Active Substance: ERYTHROMYCIN
     Indication: Hypersensitivity
     Dosage: UNK
  2. CLOZAPINE [Suspect]
     Active Substance: CLOZAPINE
     Indication: Hypersensitivity
     Dosage: 12.5 MG, 1X/DAY
     Dates: start: 20220223, end: 20220301
  3. CLOZAPINE [Suspect]
     Active Substance: CLOZAPINE
     Dosage: 25 MG, 1X/DAY
     Dates: start: 20220225
  4. ARIPIPRAZOLE [Suspect]
     Active Substance: ARIPIPRAZOLE
     Indication: Schizophrenia
     Dosage: 30 MG, 1X/DAY IN THE EVENING
  5. ASENAPINE [Concomitant]
     Active Substance: ASENAPINE
     Indication: Schizophrenia
     Dosage: UNK
     Route: 060
  6. ATORVASTATIN [Concomitant]
     Active Substance: ATORVASTATIN
     Indication: Prophylaxis
     Dosage: UNK
  7. CLOMIPRAMINE [Concomitant]
     Active Substance: CLOMIPRAMINE
     Indication: Schizophrenia
     Dosage: UNK
  8. ELEVIT [MINERALS NOS;VITAMINS NOS] [Concomitant]
     Indication: Prophylaxis
     Dosage: UNK
  9. GEMFIBROZIL [Concomitant]
     Active Substance: GEMFIBROZIL
     Indication: Hypercholesterolaemia
     Dosage: UNK
  10. RISPERIDONE [Concomitant]
     Active Substance: RISPERIDONE
  11. ASCORBIC ACID [Concomitant]
     Active Substance: ASCORBIC ACID
     Indication: Prophylaxis
     Dosage: UNK
  12. FERROUS FUMARATE [Concomitant]
     Active Substance: FERROUS FUMARATE
     Indication: Iron deficiency anaemia
     Dosage: UNK

REACTIONS (21)
  - Condition aggravated [Unknown]
  - Type 2 diabetes mellitus [Unknown]
  - Myocarditis [Unknown]
  - Liver function test abnormal [Unknown]
  - Social anxiety disorder [Unknown]
  - Leukopenia [Unknown]
  - Suicidal ideation [Unknown]
  - Depression [Unknown]
  - Schizophrenia [Unknown]
  - Prostatomegaly [Unknown]
  - Pancreatic steatosis [Unknown]
  - Vomiting [Unknown]
  - Malaise [Unknown]
  - Iron deficiency anaemia [Unknown]
  - COVID-19 [Unknown]
  - Cholelithiasis [Unknown]
  - Pyrexia [Unknown]
  - C-reactive protein increased [Recovered/Resolved]
  - White blood cell count decreased [Recovered/Resolved]
  - Loss of personal independence in daily activities [Recovered/Resolved]
  - Off label use [Unknown]

NARRATIVE: CASE EVENT DATE: 20211005
